APPROVED DRUG PRODUCT: TREMIN
Active Ingredient: TRIHEXYPHENIDYL HYDROCHLORIDE
Strength: 5MG
Dosage Form/Route: TABLET;ORAL
Application: A080381 | Product #003
Applicant: SCHERING CORP SUB SCHERING PLOUGH CORP
Approved: Approved Prior to Jan 1, 1982 | RLD: No | RS: No | Type: DISCN